FAERS Safety Report 8060223-X (Version None)
Quarter: 2012Q1

REPORT INFORMATION
  Report Type: 
  Country: None (occurrence: None)
  Receive Date: 20120120
  Receipt Date: 20111014
  Transmission Date: 20120608
  Serious: No
  Sender: FDA-Public Use
  Company Number: US-NOVEN-11US003428

PATIENT
  Sex: Male

DRUGS (1)
  1. FENTANYL [Suspect]
     Indication: ARTHRITIS
     Dosage: 50 MCG/HR, Q 3 DAYS
     Route: 062
     Dates: start: 20111001

REACTIONS (4)
  - TREMOR [None]
  - DRY MOUTH [None]
  - COLD SWEAT [None]
  - EUPHORIC MOOD [None]
